FAERS Safety Report 4894762-7 (Version None)
Quarter: 2006Q1

REPORT INFORMATION
  Report Type: 
  Country: None (occurrence: None)
  Receive Date: 20060126
  Receipt Date: 20060126
  Transmission Date: 20060701
  Serious: Yes (Other)
  Sender: FDA-Public Use
  Company Number: None

PATIENT
  Age: 64 Year
  Sex: Female
  Weight: 58.0604 kg

DRUGS (2)
  1. ULTRAM [Suspect]
     Indication: FIBROMYALGIA
     Dosage: 50 MGM 5 TABS DAILY PO
     Route: 048
     Dates: start: 20020101, end: 20060101
  2. ULTRAM [Suspect]
     Indication: PAIN
     Dosage: 50 MGM 5 TABS DAILY PO
     Route: 048
     Dates: start: 20020101, end: 20060101

REACTIONS (10)
  - CHEST PAIN [None]
  - DRUG WITHDRAWAL SYNDROME [None]
  - FATIGUE [None]
  - FEELING ABNORMAL [None]
  - HEADACHE [None]
  - HYPERTENSION [None]
  - IRRITABILITY [None]
  - MALAISE [None]
  - PAIN [None]
  - THERAPY NON-RESPONDER [None]
